FAERS Safety Report 8077843-9 (Version None)
Quarter: 2012Q1

REPORT INFORMATION
  Report Type: 
  Country: None (occurrence: None)
  Receive Date: 20120127
  Receipt Date: 20120119
  Transmission Date: 20120608
  Serious: Yes (Hospitalization, Other)
  Sender: FDA-Public Use
  Company Number: US-ELI_LILLY_AND_COMPANY-US201002002852

PATIENT
  Sex: Male
  Weight: 104.31 kg

DRUGS (15)
  1. BYETTA [Suspect]
     Dates: start: 20090425, end: 20091130
  2. METFORMIN HCL [Concomitant]
     Dosage: 500 MG, OTHER
  3. ACTOS [Concomitant]
     Dosage: 22.5 MG, EACH EVENING
  4. NOVOLOG [Concomitant]
     Dosage: UNK, OTHER
  5. ACTOS [Concomitant]
     Dosage: 45 MG, DAILY (1/D)
  6. LIPITOR [Concomitant]
     Dosage: 10 MG, EACH MORNING
  7. TRICOR [Concomitant]
     Dosage: 145 MG, EACH MORNING
  8. MOTRIN [Concomitant]
     Dosage: UNK, AS NEEDED
  9. BYETTA [Suspect]
     Dosage: 10 UG, 3/D
  10. ATENOLOL [Concomitant]
     Dosage: 6.25 MG, EACH EVENING
  11. LANTUS [Concomitant]
     Indication: DIABETES MELLITUS
     Dosage: 40 U, EACH EVENING
  12. VITAMINS NOS [Concomitant]
     Dosage: UNK, EACH MORNING
  13. BYETTA [Suspect]
     Dosage: UNK, UNK
     Dates: end: 20090425
  14. ASPIRIN [Concomitant]
     Dosage: 325 MG, EACH MORNING
  15. TYLENOL                                 /SCH/ [Concomitant]
     Indication: CLUSTER HEADACHE
     Dosage: UNK, AS NEEDED

REACTIONS (8)
  - URINARY TRACT INFECTION [None]
  - DRUG PRESCRIBING ERROR [None]
  - RENAL FAILURE [None]
  - BENIGN PROSTATIC HYPERPLASIA [None]
  - BACK PAIN [None]
  - HYDRONEPHROSIS [None]
  - URINARY TRACT OBSTRUCTION [None]
  - OFF LABEL USE [None]
